FAERS Safety Report 8294441-2 (Version None)
Quarter: 2012Q2

REPORT INFORMATION
  Report Type: 
  Country: None (occurrence: None)
  Receive Date: 20120418
  Receipt Date: 20120411
  Transmission Date: 20120825
  Serious: Yes (Life-Threatening, Hospitalization)
  Sender: FDA-Public Use
  Company Number: PHHY2012AT031021

PATIENT
  Age: 58 Year
  Sex: Female

DRUGS (2)
  1. METHYLPREDNISOLONE [Suspect]
     Dosage: 4 MG DAY
  2. MYCOPHENOLIC ACID [Suspect]
     Dosage: 720 MG, BID
     Dates: start: 20100901

REACTIONS (9)
  - IMPAIRED HEALING [None]
  - PYREXIA [None]
  - GENERAL PHYSICAL HEALTH DETERIORATION [None]
  - LARGE INTESTINAL ULCER [None]
  - LARGE INTESTINE PERFORATION [None]
  - CYTOMEGALOVIRUS INFECTION [None]
  - INFECTIOUS PERITONITIS [None]
  - ABDOMINAL PAIN [None]
  - URINARY RETENTION [None]
